FAERS Safety Report 13225983 (Version 6)
Quarter: 2019Q3

REPORT INFORMATION
  Report Type: Report from Study
  Country: DE (occurrence: DE)
  Receive Date: 20170213
  Receipt Date: 20190826
  Transmission Date: 20191004
  Serious: Yes (Other)
  Sender: FDA-Public Use
  Company Number: DE-BRISTOL-MYERS SQUIBB COMPANY-BMS-2017-011596

PATIENT
  Age: 84 Year
  Sex: Female
  Weight: 65 kg

DRUGS (1)
  1. APIXABAN [Suspect]
     Active Substance: APIXABAN
     Indication: THROMBOSIS PROPHYLAXIS
     Dosage: 2.5 MG, BID
     Route: 048
     Dates: start: 20161227, end: 20170606

REACTIONS (4)
  - Fall [Unknown]
  - Atrial fibrillation [Unknown]
  - Cardiac failure [Unknown]
  - Skin discolouration [Unknown]

NARRATIVE: CASE EVENT DATE: 20170124
